FAERS Safety Report 21962104 (Version 1)
Quarter: 2023Q1

REPORT INFORMATION
  Report Type: Report from Study
  Country: US (occurrence: US)
  Receive Date: 20230207
  Receipt Date: 20230207
  Transmission Date: 20230417
  Serious: Yes (Hospitalization, Other)
  Sender: FDA-Public Use
  Company Number: US-ORG100014127-2022001314

PATIENT
  Age: 65 Year
  Sex: Male

DRUGS (12)
  1. LYSODREN [Suspect]
     Active Substance: MITOTANE
     Indication: Adrenal gland cancer
     Dosage: 5 TABLETS EVERY 6 HOURS (4 TIMES DAILY)
     Route: 048
     Dates: start: 20220308
  2. LYSODREN [Suspect]
     Active Substance: MITOTANE
     Indication: Adrenal gland cancer
     Dosage: 7 TABLETS IN THE MORNING, 6 AT NOON, 6 IN THE EVENING AND 6 AT BEDTIME
     Route: 048
     Dates: start: 2022
  3. BUMETANIDE [Concomitant]
     Active Substance: BUMETANIDE
     Indication: Product used for unknown indication
  4. CARVEDILOL [Concomitant]
     Active Substance: CARVEDILOL
     Indication: Product used for unknown indication
  5. FUROSEMIDE [Concomitant]
     Active Substance: FUROSEMIDE
     Indication: Product used for unknown indication
     Dosage: 20 MG, THEN 40 MG
  6. Hydrochlorothiazide 12,5 mg [Concomitant]
     Indication: Product used for unknown indication
  7. LISINOPRIL [Concomitant]
     Active Substance: LISINOPRIL
     Indication: Product used for unknown indication
  8. METOPROLOL TARTRATE [Concomitant]
     Active Substance: METOPROLOL TARTRATE
     Indication: Product used for unknown indication
     Dosage: 100 MG, THEN 50 MG
  9. POTASSIUM CHLORIDE [Concomitant]
     Active Substance: POTASSIUM CHLORIDE
     Indication: Product used for unknown indication
     Dosage: 20 MILLIEQUIVALENT
  10. Prazosin hydrochloride 2 mg [Concomitant]
     Indication: Product used for unknown indication
  11. PREDNISONE [Concomitant]
     Active Substance: PREDNISONE
     Indication: Product used for unknown indication
  12. Verapamil  80 mg [Concomitant]
     Indication: Product used for unknown indication

REACTIONS (1)
  - Adrenal insufficiency [Recovered/Resolved]
